FAERS Safety Report 21797079 (Version 4)
Quarter: 2023Q1

REPORT INFORMATION
  Report Type: Report from Study
  Country: ES (occurrence: ES)
  Receive Date: 20221230
  Receipt Date: 20230123
  Transmission Date: 20230417
  Serious: Yes (Death, Other)
  Sender: FDA-Public Use
  Company Number: ES-ABBVIE-4253661

PATIENT
  Age: 76 Year
  Sex: Male
  Weight: 66 kg

DRUGS (5)
  1. CARBIDOPA\LEVODOPA [Suspect]
     Active Substance: CARBIDOPA\LEVODOPA
     Indication: Parkinson^s disease
     Route: 050
     Dates: start: 20161201, end: 20221225
  2. CARBIDOPA\LEVODOPA [Suspect]
     Active Substance: CARBIDOPA\LEVODOPA
  3. MORPHINE [Concomitant]
     Active Substance: MORPHINE
     Indication: Product used for unknown indication
     Dates: start: 20221225
  4. MORPHINE [Concomitant]
     Active Substance: MORPHINE
     Indication: Product used for unknown indication
     Dates: start: 20221225
  5. IRON [Concomitant]
     Active Substance: IRON
     Indication: Anaemia

REACTIONS (6)
  - Parkinson^s disease [Fatal]
  - Terminal state [Fatal]
  - Anaemia [Unknown]
  - Cerebral microinfarction [Unknown]
  - Loss of consciousness [Unknown]
  - Aphasia [Unknown]

NARRATIVE: CASE EVENT DATE: 20221201
